FAERS Safety Report 4363987-1 (Version None)
Quarter: 2004Q2

REPORT INFORMATION
  Report Type: 
  Country: None (occurrence: None)
  Receive Date: 20040520
  Receipt Date: 20040520
  Transmission Date: 20050107
  Serious: Yes (Hospitalization, Disabling)
  Sender: FDA-Public Use
  Company Number: None

PATIENT
  Age: 75 Year
  Sex: Male
  Weight: 79.3795 kg

DRUGS (2)
  1. ZOMETA [Suspect]
     Indication: OSTEOMYELITIS
     Dosage: MONTHLY
  2. ARIMIDEX [Concomitant]

REACTIONS (1)
  - IMPAIRED HEALING [None]
